FAERS Safety Report 8957597 (Version 1)
Quarter: 2012Q4

REPORT INFORMATION
  Report Type: 
  Country: US (occurrence: US)
  Receive Date: 20121210
  Receipt Date: 20121210
  Transmission Date: 20130627
  Serious: Yes (Other)
  Sender: FDA-Public Use
  Company Number: US-JNJCH-2007327095

PATIENT
  Age: 75 Year
  Sex: Male

DRUGS (3)
  1. IBUPROFEN [Suspect]
     Indication: OSTEOARTHRITIS
     Dosage: UNSPECIFIED
     Route: 065
     Dates: start: 1993, end: 200301
  2. ASPIRIN [Concomitant]
     Dosage: UNK
     Route: 065
  3. MORPHINE [Concomitant]
     Route: 065

REACTIONS (3)
  - Diplopia [Not Recovered/Not Resolved]
  - Vision blurred [Not Recovered/Not Resolved]
  - Joint arthroplasty [Recovered/Resolved]
